FAERS Safety Report 9451658 (Version 2)
Quarter: 2013Q4

REPORT INFORMATION
  Report Type: Spontaneous
  Country: AU (occurrence: AU)
  Receive Date: 20130812
  Receipt Date: 20131014
  Transmission Date: 20140711
  Serious: Yes (Life-Threatening, Hospitalization)
  Sender: FDA-Public Use
  Company Number: AU-ROCHE-1260017

PATIENT
  Age: 74 Year
  Sex: Female

DRUGS (5)
  1. ACTILYSE [Suspect]
     Indication: ISCHAEMIC STROKE
     Route: 065
     Dates: start: 20100124, end: 20100124
  2. ATENOLOL [Concomitant]
  3. PERINDOPRIL [Concomitant]
  4. SIMVASTATIN [Concomitant]
  5. ASPIRIN [Concomitant]

REACTIONS (1)
  - Angioedema [Recovered/Resolved]
